FAERS Safety Report 9591671 (Version 1)
Quarter: 2013Q4

REPORT INFORMATION
  Report Type: Spontaneous
  Country: US (occurrence: US)
  Receive Date: 20131004
  Receipt Date: 20131004
  Transmission Date: 20140711
  Serious: No
  Sender: FDA-Public Use
  Company Number: US-AMGEN-USASP2012082491

PATIENT
  Age: 60 Year
  Sex: Female

DRUGS (11)
  1. ENBREL [Suspect]
     Indication: RHEUMATOID ARTHRITIS
     Dosage: 50 MG, QWK
     Route: 058
  2. PLAQUENIL                          /00072602/ [Concomitant]
     Dosage: 200 MG, UNK
  3. PREMARIN [Concomitant]
     Dosage: 0.3 MG, UNK
  4. MELOXICAM [Concomitant]
     Dosage: 7.5 MG, UNK
  5. METHOTREXATE [Concomitant]
     Dosage: 2.5 MG, UNK
  6. PREDNISONE [Concomitant]
     Dosage: 1 MG, UNK
  7. SYNTHROID [Concomitant]
     Dosage: 25 MCG, UNK
  8. TRILIPIX [Concomitant]
     Dosage: 135 MG, UNK
  9. ATENOLOL [Concomitant]
     Dosage: 100 MG, UNK
  10. LOVAZA [Concomitant]
     Dosage: 1 GM, UNK
  11. WELCHOL [Concomitant]
     Dosage: 3.75 GM, UNK

REACTIONS (1)
  - Viral skin infection [Recovered/Resolved]
